FAERS Safety Report 16585544 (Version 10)
Quarter: 2020Q3

REPORT INFORMATION
  Report Type: Spontaneous
  Country: US (occurrence: US)
  Receive Date: 20190717
  Receipt Date: 20200819
  Transmission Date: 20201102
  Serious: No
  Sender: FDA-Public Use
  Company Number: US-ACTELION-A-US2019-193069

PATIENT
  Age: 67 Year
  Sex: Female
  Weight: 68.03 kg

DRUGS (3)
  1. OPSUMIT [Suspect]
     Active Substance: MACITENTAN
     Indication: PULMONARY HYPERTENSION
     Dosage: 10 MG, QD
     Route: 048
  2. REMODULIN [Suspect]
     Active Substance: TREPROSTINIL
     Indication: PRODUCT USED FOR UNKNOWN INDICATION
     Dosage: UNK
     Route: 058
  3. REVATIO [Concomitant]
     Active Substance: SILDENAFIL CITRATE

REACTIONS (12)
  - Catheter site swelling [Unknown]
  - Catheter site erythema [Unknown]
  - Diarrhoea [Not Recovered/Not Resolved]
  - Skin disorder [Unknown]
  - Catheter site irritation [Unknown]
  - Catheter site pain [Unknown]
  - Pneumonia [Unknown]
  - Pyrexia [Unknown]
  - Weight decreased [Unknown]
  - Echocardiogram abnormal [Unknown]
  - Catheter site discharge [Unknown]
  - Flatulence [Unknown]

NARRATIVE: CASE EVENT DATE: 20190704
